FAERS Safety Report 20784236 (Version 1)
Quarter: 2022Q2

REPORT INFORMATION
  Report Type: Spontaneous
  Country: US (occurrence: US)
  Receive Date: 20220504
  Receipt Date: 20220504
  Transmission Date: 20220721
  Serious: No
  Sender: FDA-Public Use
  Company Number: US-PFIZER INC-2019485337

PATIENT
  Age: 66 Year
  Sex: Male

DRUGS (2)
  1. LYRICA [Suspect]
     Active Substance: PREGABALIN
     Dosage: 100 MG, 4X/DAY
     Route: 048
  2. LYRICA [Suspect]
     Active Substance: PREGABALIN
     Dosage: 100 MG (TAKE 1 CAPSULE 4-5 TIMES A DAY AS DIRECTED BY PHYSICIAN)
     Route: 048

REACTIONS (1)
  - Rhinorrhoea [Unknown]
